FAERS Safety Report 8454330-7 (Version None)
Quarter: 2012Q2

REPORT INFORMATION
  Report Type: 
  Country: None (occurrence: None)
  Receive Date: 20120621
  Receipt Date: 20120320
  Transmission Date: 20120825
  Serious: No
  Sender: FDA-Public Use
  Company Number: US-ALLERGAN-1203316US

PATIENT
  Age: 66 Year
  Sex: Female

DRUGS (2)
  1. LUMIGAN [Suspect]
     Indication: INTRAOCULAR PRESSURE INCREASED
     Dosage: 2 GTT, QHS
     Route: 047
     Dates: start: 20120201
  2. COMBIGAN [Suspect]
     Indication: INTRAOCULAR PRESSURE INCREASED
     Dosage: 2 GTT, BID
     Route: 047
     Dates: start: 20120201

REACTIONS (6)
  - EYE PRURITUS [None]
  - EYE DISORDER [None]
  - SCLERAL HYPERAEMIA [None]
  - EYE IRRITATION [None]
  - ERYTHEMA [None]
  - RASH [None]
